FAERS Safety Report 21190325 (Version 2)
Quarter: 2022Q3

REPORT INFORMATION
  Report Type: Spontaneous
  Country: GB (occurrence: GB)
  Receive Date: 20220809
  Receipt Date: 20220816
  Transmission Date: 20221026
  Serious: Yes (Other)
  Sender: FDA-Public Use
  Company Number: GB-PFIZER INC-202201017168

PATIENT
  Age: 42 Year
  Sex: Female
  Weight: 72 kg

DRUGS (3)
  1. COMIRNATY [Suspect]
     Active Substance: TOZINAMERAN
     Indication: COVID-19 immunisation
     Dosage: DOSE 3 (BOOSTER), SINGLE
     Dates: start: 20211211, end: 20211211
  2. RAMIPRIL [Suspect]
     Active Substance: RAMIPRIL
     Dosage: UNK
  3. CANDESARTAN [Suspect]
     Active Substance: CANDESARTAN
     Dosage: UNK

REACTIONS (29)
  - Myocarditis [Recovering/Resolving]
  - Angioedema [Unknown]
  - Headache [Unknown]
  - Hypertension [Recovering/Resolving]
  - Tachyphrenia [Unknown]
  - Vision blurred [Recovering/Resolving]
  - Palpitations [Recovering/Resolving]
  - Diastolic hypertension [Not Recovered/Not Resolved]
  - Anxiety [Unknown]
  - Pruritus [Recovering/Resolving]
  - Dysgeusia [Unknown]
  - Fatigue [Unknown]
  - Peripheral swelling [Unknown]
  - Abnormal weight gain [Unknown]
  - Chapped lips [Unknown]
  - Skin exfoliation [Unknown]
  - Lip dry [Unknown]
  - Lip pruritus [Unknown]
  - Urinary tract infection [Unknown]
  - Alopecia [Unknown]
  - Nightmare [Unknown]
  - Chromaturia [Unknown]
  - Burning sensation [Unknown]
  - Feeling abnormal [Unknown]
  - Migraine [Unknown]
  - Sleep disorder [Unknown]
  - Hair injury [Unknown]
  - Swelling [Unknown]
  - Loss of personal independence in daily activities [Unknown]

NARRATIVE: CASE EVENT DATE: 20211211
